FAERS Safety Report 25862259 (Version 1)
Quarter: 2025Q3

REPORT INFORMATION
  Report Type: Spontaneous
  Country: US (occurrence: US)
  Receive Date: 20250930
  Receipt Date: 20250930
  Transmission Date: 20251021
  Serious: Yes (Other)
  Sender: AUROBINDO
  Company Number: US-AUROBINDO-AUR-APL-2025-048436

PATIENT
  Age: 74 Year
  Sex: Female

DRUGS (14)
  1. MIDODRINE HYDROCHLORIDE [Suspect]
     Active Substance: MIDODRINE HYDROCHLORIDE
     Indication: Shock
     Route: 065
  2. PHENYLEPHRINE [Suspect]
     Active Substance: PHENYLEPHRINE
     Indication: Shock
     Route: 065
  3. VASOPRESSIN [Suspect]
     Active Substance: VASOPRESSIN
     Indication: Shock
     Route: 065
  4. NOREPINEPHRINE [Suspect]
     Active Substance: NOREPINEPHRINE
     Indication: Shock
     Route: 065
  5. METHYLENE BLUE [Suspect]
     Active Substance: METHYLENE BLUE
     Indication: Shock
     Route: 065
  6. TROMETHAMINE [Suspect]
     Active Substance: TROMETHAMINE
     Indication: Shock
     Route: 065
  7. SODIUM BICARBONATE [Suspect]
     Active Substance: SODIUM BICARBONATE
     Indication: Shock
     Route: 065
  8. EPINEPHRINE [Suspect]
     Active Substance: EPINEPHRINE
     Indication: Shock
     Route: 065
  9. METHYLENE BLUE [Concomitant]
     Active Substance: METHYLENE BLUE
     Indication: Shock
     Route: 065
  10. TROMETHAMINE [Concomitant]
     Active Substance: TROMETHAMINE
     Indication: Shock
     Route: 065
  11. MIDODRINE [Concomitant]
     Active Substance: MIDODRINE
     Indication: Shock
     Route: 065
  12. VANCOMYCIN [Concomitant]
     Active Substance: VANCOMYCIN
     Indication: Shock
     Route: 065
  13. CEFEPIME [Concomitant]
     Active Substance: CEFEPIME HYDROCHLORIDE
     Indication: Shock
     Route: 065
  14. METRONIDAZOLE [Concomitant]
     Active Substance: METRONIDAZOLE
     Indication: Shock
     Route: 065

REACTIONS (1)
  - Drug ineffective [Unknown]
